FAERS Safety Report 4722587-1 (Version None)
Quarter: 2005Q3

REPORT INFORMATION
  Report Type: 
  Country: None (occurrence: None)
  Receive Date: 20050720
  Receipt Date: 20050712
  Transmission Date: 20060218
  Serious: Yes (Hospitalization)
  Sender: FDA-Public Use
  Company Number: 2005100095

PATIENT
  Sex: Male

DRUGS (5)
  1. ALDACTONE [Suspect]
     Indication: ILL-DEFINED DISORDER
     Dosage: 100 MG (100 MG, ONCE  DAILY), ORAL
     Route: 048
     Dates: end: 20050513
  2. ALDALIX (SPIRONOLACTONE, FUROSEMIDE) [Suspect]
     Indication: ILL-DEFINED DISORDER
     Dosage: 20 MG (ONCE DAILY), ORAL
     Route: 048
     Dates: end: 20050513
  3. TOVLON (MIANSERINE HYDROCHLORIDE) [Concomitant]
  4. ASPIRIN [Concomitant]
  5. KCL TAB [Concomitant]

REACTIONS (7)
  - DIZZINESS [None]
  - FIBRIN D DIMER DECREASED [None]
  - HYPOTENSION [None]
  - MALAISE [None]
  - MUSCLE SPASMS [None]
  - PAIN IN EXTREMITY [None]
  - VERTIGO [None]
